FAERS Safety Report 6407568-4 (Version None)
Quarter: 2009Q4

REPORT INFORMATION
  Report Type: 
  Country: None (occurrence: None)
  Receive Date: 20091020
  Receipt Date: 20091014
  Transmission Date: 20100525
  Serious: Yes (Death)
  Sender: FDA-Public Use
  Company Number: CHNY2009JP03535

PATIENT
  Sex: Female

DRUGS (2)
  1. PURSENNID (NCH) [Suspect]
     Indication: X-RAY WITH CONTRAST LOWER GASTROINTESTINAL TRACT
     Route: 048
  2. LAXOBERON [Concomitant]
     Indication: X-RAY WITH CONTRAST LOWER GASTROINTESTINAL TRACT
     Route: 048

REACTIONS (1)
  - INTESTINAL PERFORATION [None]
